FAERS Safety Report 25110264 (Version 1)
Quarter: 2025Q1

REPORT INFORMATION
  Report Type: Spontaneous
  Country: GB (occurrence: GB)
  Receive Date: 20250324
  Receipt Date: 20250324
  Transmission Date: 20250408
  Serious: Yes (Other)
  Sender: AMGEN
  Company Number: GB-AMGEN-GBRSP2025053961

PATIENT
  Sex: Female

DRUGS (1)
  1. ARANESP [Suspect]
     Active Substance: DARBEPOETIN ALFA
     Indication: Dialysis
     Dosage: 80 MICROGRAM, Q4WK (ROA: INJECTION) (THERAPPY AREA: RENAL)
     Route: 065

REACTIONS (1)
  - Dialysis [Unknown]
